FAERS Safety Report 4374008-9 (Version None)
Quarter: 2004Q2

REPORT INFORMATION
  Report Type: 
  Country: None (occurrence: None)
  Receive Date: 20040603
  Receipt Date: 20040518
  Transmission Date: 20050107
  Serious: Yes (Other)
  Sender: FDA-Public Use
  Company Number: GBS040514951

PATIENT
  Age: 23 Year
  Sex: Male

DRUGS (4)
  1. OLANZAPINE [Suspect]
     Indication: PERSONALITY DISORDER
     Dosage: 20 MG
     Dates: start: 20030914, end: 20040113
  2. LAMOTRIGINE [Concomitant]
  3. CITALOPRAM [Concomitant]
  4. LANSOPRAZOLE [Concomitant]

REACTIONS (3)
  - CHOKING SENSATION [None]
  - DYSPNOEA [None]
  - NAUSEA [None]
